FAERS Safety Report 15545565 (Version 1)
Quarter: 2018Q4

REPORT INFORMATION
  Report Type: Report from Study
  Country: DE (occurrence: DE)
  Receive Date: 20181024
  Receipt Date: 20181024
  Transmission Date: 20190205
  Serious: No
  Sender: FDA-Public Use
  Company Number: DE-IPSEN BIOPHARMACEUTICALS, INC.-2018-15732

PATIENT
  Sex: Male

DRUGS (1)
  1. SOMATULINE AUTOGEL 120MG [Suspect]
     Active Substance: LANREOTIDE ACETATE
     Indication: GASTROENTEROPANCREATIC NEUROENDOCRINE TUMOUR DISEASE
     Route: 058
     Dates: start: 20180412

REACTIONS (4)
  - Pyrexia [Recovering/Resolving]
  - Chills [Recovering/Resolving]
  - Nocturia [Recovering/Resolving]
  - Off label use [Unknown]

NARRATIVE: CASE EVENT DATE: 20180910
